FAERS Safety Report 8186534-5 (Version None)
Quarter: 2012Q1

REPORT INFORMATION
  Report Type: 
  Country: None (occurrence: None)
  Receive Date: 20120306
  Receipt Date: 20120229
  Transmission Date: 20120608
  Serious: Yes (Hospitalization)
  Sender: FDA-Public Use
  Company Number: IT-ABBOTT-12P-083-0910112-00

PATIENT
  Sex: Female

DRUGS (1)
  1. CLARITHROMYCIN [Suspect]
     Indication: TOOTH ABSCESS
     Dosage: TOTAL
     Route: 048
     Dates: start: 20120228, end: 20120228

REACTIONS (3)
  - DYSPHONIA [None]
  - LARYNGEAL OEDEMA [None]
  - MACROGLOSSIA [None]
